FAERS Safety Report 5476546-4 (Version None)
Quarter: 2007Q3

REPORT INFORMATION
  Report Type: 
  Country: None (occurrence: None)
  Receive Date: 20070926
  Receipt Date: 20070320
  Transmission Date: 20080115
  Serious: Yes (Other)
  Sender: FDA-Public Use
  Company Number: 2007022565

PATIENT
  Age: 28 Year
  Sex: Female
  Weight: 70.3 kg

DRUGS (2)
  1. ZYRTEC [Suspect]
     Dates: start: 20070319
  2. CELEBREX [Concomitant]

REACTIONS (2)
  - SWELLING FACE [None]
  - URTICARIA [None]
